FAERS Safety Report 10163626 (Version 1)
Quarter: 2014Q2

REPORT INFORMATION
  Report Type: Spontaneous
  Country: US (occurrence: US)
  Receive Date: 20140509
  Receipt Date: 20140509
  Transmission Date: 20141212
  Serious: Yes (Other)
  Sender: FDA-Public Use
  Company Number: US-TEVA-480608USA

PATIENT
  Age: 19 Year
  Sex: Female
  Weight: 90.8 kg

DRUGS (1)
  1. PARAGARD 380A [Suspect]
     Indication: CONTRACEPTION
     Dates: start: 2012, end: 20140428

REACTIONS (1)
  - Device dislocation [Recovered/Resolved]
